FAERS Safety Report 4747788-8 (Version None)
Quarter: 2005Q3

REPORT INFORMATION
  Report Type: 
  Country: None (occurrence: None)
  Receive Date: 20050816
  Receipt Date: 20050804
  Transmission Date: 20060218
  Serious: Yes (Death)
  Sender: FDA-Public Use
  Company Number: 2005-DE-03048GD

PATIENT
  Age: 36 Year
  Sex: Female

DRUGS (4)
  1. BISOLTUSSIN [Suspect]
  2. DIAZEPAM [Suspect]
  3. CITALOPRAM HYDROBROMIDE [Suspect]
  4. BENZODIAZEPINE (BENZODIAZEPINE DERIVATIVES) [Suspect]

REACTIONS (3)
  - BLOOD ALCOHOL ABNORMAL [None]
  - COMPLETED SUICIDE [None]
  - POISONING [None]
